FAERS Safety Report 8826954 (Version 1)
Quarter: 2012Q4

REPORT INFORMATION
  Report Type: 
  Country: JP (occurrence: JP)
  Receive Date: 20121007
  Receipt Date: 20121007
  Transmission Date: 20130627
  Serious: Yes (Death)
  Sender: FDA-Public Use
  Company Number: JP-ELI_LILLY_AND_COMPANY-JP201106007874

PATIENT
  Age: 55 Year
  Sex: Female

DRUGS (2)
  1. FORTEO [Suspect]
     Dosage: UNK
     Route: 058
     Dates: start: 20110608
  2. WARFARIN [Concomitant]
     Indication: CARDIAC DISORDER
     Dosage: UNK
     Route: 048

REACTIONS (2)
  - Death [Fatal]
  - Injection site bruising [Unknown]
